FAERS Safety Report 5167561-9 (Version None)
Quarter: 2006Q4

REPORT INFORMATION
  Report Type: 
  Country: None (occurrence: None)
  Receive Date: 20060830
  Receipt Date: 20060520
  Transmission Date: 20070319
  Serious: Yes (Other)
  Sender: FDA-Public Use
  Company Number: 217569

PATIENT
  Age: 33 Year
  Sex: Female
  Weight: 51.1 kg

DRUGS (8)
  1. XOLAIR [Suspect]
     Indication: ASTHMA
     Dosage: 300 MG, 1/MONTH
     Dates: start: 20050713
  2. IMMUNOTHERAPY NOS (IMMUNOMODULATOR NOS) [Concomitant]
  3. PREVACID [Concomitant]
  4. ADVAIR DISKUS 100/50 [Concomitant]
  5. SINGULAIR [Concomitant]
  6. CALCIUM (CALCIUM NOS) [Concomitant]
  7. MULTI-VITAMINS [Concomitant]
  8. XOPENEX [Concomitant]

REACTIONS (1)
  - ARTHRALGIA [None]
